FAERS Safety Report 7176927-7 (Version None)
Quarter: 2010Q4

REPORT INFORMATION
  Report Type: 
  Country: None (occurrence: None)
  Receive Date: 20101215
  Receipt Date: 20101215
  Transmission Date: 20110411
  Serious: Yes (Hospitalization)
  Sender: FDA-Public Use
  Company Number: None

PATIENT
  Age: 31 Year
  Sex: Female
  Weight: 58.514 kg

DRUGS (1)
  1. FLAGYL [Suspect]
     Indication: SEXUALLY TRANSMITTED DISEASE
     Dosage: 1 TABLET 2 X A DAY PO
     Route: 048
     Dates: start: 20101118, end: 20101121

REACTIONS (2)
  - DRUG INEFFECTIVE [None]
  - PRODUCT QUALITY ISSUE [None]
